FAERS Safety Report 8031307-7 (Version None)
Quarter: 2012Q1

REPORT INFORMATION
  Report Type: 
  Country: None (occurrence: None)
  Receive Date: 20120109
  Receipt Date: 20120103
  Transmission Date: 20120608
  Serious: Yes (Other)
  Sender: FDA-Public Use
  Company Number: US-GLAXOSMITHKLINE-A0950573A

PATIENT

DRUGS (1)
  1. ADVAIR DISKUS 100/50 [Suspect]
     Route: 055

REACTIONS (4)
  - FOREIGN BODY [None]
  - PRODUCT QUALITY ISSUE [None]
  - CHOKING [None]
  - MEDICATION RESIDUE [None]
